FAERS Safety Report 8980714 (Version 2)
Quarter: 2013Q1

REPORT INFORMATION
  Report Type: Spontaneous
  Country: US (occurrence: US)
  Receive Date: 20121221
  Receipt Date: 20130122
  Transmission Date: 20140127
  Serious: Yes (Other)
  Sender: FDA-Public Use
  Company Number: US-FRI-1000041171

PATIENT
  Age: 51 Year
  Sex: Female

DRUGS (8)
  1. VIIBRYD [Suspect]
     Indication: DEPRESSION
     Dosage: 10 MG
     Route: 048
     Dates: start: 201208, end: 2012
  2. VIIBRYD [Suspect]
     Indication: SUICIDAL IDEATION
     Dosage: 20 MG
     Route: 048
     Dates: start: 2012, end: 2012
  3. VIIBRYD [Suspect]
     Indication: DEPRESSION
     Dosage: 40 MG
     Route: 048
     Dates: start: 2012, end: 2012
  4. VIIBRYD [Suspect]
     Indication: SUICIDAL IDEATION
  5. VIIBRYD [Suspect]
     Indication: DEPRESSION
     Dosage: 30 MG
     Route: 048
     Dates: start: 2012, end: 201212
  6. VIIBRYD [Suspect]
     Indication: SUICIDAL IDEATION
     Dosage: 40 MG
     Route: 048
     Dates: start: 201212
  7. ADDERALL [Concomitant]
     Indication: ATTENTION DEFICIT/HYPERACTIVITY DISORDER
     Dosage: 30 MG
  8. ASPIRIN/ACETAMINOPHEN/CAFFEINE [Concomitant]
     Dosage: 250/250/65 MG DAILY

REACTIONS (6)
  - Suicidal ideation [Recovered/Resolved]
  - Depression [Recovered/Resolved]
  - Insomnia [Recovered/Resolved]
  - Feeling drunk [Recovered/Resolved]
  - Dizziness [Recovered/Resolved]
  - Drug ineffective [Recovered/Resolved]
